FAERS Safety Report 9489919 (Version 2)
Quarter: 2013Q3

REPORT INFORMATION
  Report Type: Spontaneous
  Country: US (occurrence: US)
  Receive Date: 20130725
  Receipt Date: 20130725
  Transmission Date: 20140515
  Serious: Yes (Hospitalization)
  Sender: FDA-Public Use
  Company Number: US-GLAXOSMITHKLINE-B0752643A

PATIENT
  Age: 56 Year
  Sex: Female
  Weight: 80.5 kg

DRUGS (2)
  1. AVANDIA [Suspect]
     Indication: DIABETES MELLITUS
     Dosage: 2MG PER DAY
     Route: 048
     Dates: start: 20070308, end: 20070608
  2. ACTOS [Concomitant]
     Dates: end: 200912

REACTIONS (3)
  - Cardiac failure congestive [Not Recovered/Not Resolved]
  - Oedema [Unknown]
  - Dyspnoea [Unknown]
